FAERS Safety Report 20593110 (Version 2)
Quarter: 2022Q2

REPORT INFORMATION
  Report Type: Other
  Country: NL (occurrence: NL)
  Receive Date: 20220315
  Receipt Date: 20220405
  Transmission Date: 20220721
  Serious: Yes (Other)
  Sender: FDA-Public Use
  Company Number: NL-ROCHE-3046093

PATIENT
  Age: 9 Year
  Sex: Male

DRUGS (18)
  1. RITUXIMAB [Suspect]
     Active Substance: RITUXIMAB
     Indication: Autoinflammatory disease
     Route: 041
     Dates: start: 201205
  2. RITUXIMAB [Suspect]
     Active Substance: RITUXIMAB
     Route: 042
     Dates: start: 201212
  3. METHOTREXATE [Suspect]
     Active Substance: METHOTREXATE
     Indication: Autoinflammatory disease
     Route: 065
  4. INFLIXIMAB [Suspect]
     Active Substance: INFLIXIMAB
     Indication: Autoinflammatory disease
     Route: 065
     Dates: start: 201204, end: 201207
  5. INFLIXIMAB [Suspect]
     Active Substance: INFLIXIMAB
     Route: 065
     Dates: start: 201209, end: 201301
  6. PREDNISOLONE [Suspect]
     Active Substance: PREDNISOLONE
     Indication: Autoinflammatory disease
     Route: 065
     Dates: start: 201110, end: 201202
  7. PREDNISOLONE [Suspect]
     Active Substance: PREDNISOLONE
     Route: 065
     Dates: start: 201204, end: 201207
  8. PREDNISOLONE [Suspect]
     Active Substance: PREDNISOLONE
     Dosage: 1-2 MG/KG, FURTHER DOSE WAS TAPERED
     Route: 065
     Dates: start: 201304, end: 201307
  9. PREDNISOLONE [Suspect]
     Active Substance: PREDNISOLONE
     Route: 065
     Dates: start: 201401
  10. PREDNISOLONE [Suspect]
     Active Substance: PREDNISOLONE
     Dosage: {/=2 TIMES-A-DAY 5 MG
     Route: 065
     Dates: start: 201402
  11. METHYLPREDNISOLONE [Suspect]
     Active Substance: METHYLPREDNISOLONE
     Indication: Autoinflammatory disease
     Route: 042
     Dates: start: 201203
  12. METHYLPREDNISOLONE [Suspect]
     Active Substance: METHYLPREDNISOLONE
     Indication: Pyrexia
     Route: 042
     Dates: start: 201208
  13. FLUDARABINE [Suspect]
     Active Substance: FLUDARABINE PHOSPHATE
     Indication: Prophylaxis against transplant rejection
     Route: 065
     Dates: start: 201302
  14. TREOSULFAN [Suspect]
     Active Substance: TREOSULFAN
     Indication: Prophylaxis against transplant rejection
     Route: 065
     Dates: start: 201302
  15. LAPINE T-LYMPHOCYTE IMMUNE GLOBULIN [Suspect]
     Active Substance: LAPINE T-LYMPHOCYTE IMMUNE GLOBULIN
     Indication: Prophylaxis against transplant rejection
     Route: 065
     Dates: start: 201302
  16. DESLORATADINE [Concomitant]
     Active Substance: DESLORATADINE
  17. FLUCONAZOLE [Concomitant]
     Active Substance: FLUCONAZOLE
     Dates: start: 201110, end: 201202
  18. SIROLIMUS [Concomitant]
     Active Substance: SIROLIMUS
     Dates: start: 201402, end: 201405

REACTIONS (6)
  - Failure to thrive [Unknown]
  - Off label use [Unknown]
  - Viral infection [Unknown]
  - Viral infection [Unknown]
  - Ill-defined disorder [Unknown]
  - Gastrointestinal viral infection [Unknown]
